FAERS Safety Report 8523770-X (Version None)
Quarter: 2012Q3

REPORT INFORMATION
  Report Type: 
  Country: None (occurrence: None)
  Receive Date: 20120720
  Receipt Date: 20120712
  Transmission Date: 20120928
  Serious: Yes (Other)
  Sender: FDA-Public Use
  Company Number: JP-ASTELLAS-2012JP006575

PATIENT
  Age: 72 Year
  Sex: Male

DRUGS (3)
  1. PROGRAF [Suspect]
     Route: 065
  2. METHYLPREDNISOLONE [Concomitant]
     Indication: ACUTE GRAFT VERSUS HOST DISEASE
     Dosage: 125 MG, UNKNOWN/D
     Route: 065
  3. PROGRAF [Suspect]
     Indication: CORD BLOOD TRANSPLANT THERAPY
     Route: 065

REACTIONS (3)
  - CYTOMEGALOVIRUS ENTEROCOLITIS [None]
  - DRUG INEFFECTIVE [None]
  - ACUTE GRAFT VERSUS HOST DISEASE [None]
